FAERS Safety Report 21818826 (Version 1)
Quarter: 2023Q1

REPORT INFORMATION
  Report Type: Spontaneous
  Country: AT (occurrence: AT)
  Receive Date: 20230104
  Receipt Date: 20230104
  Transmission Date: 20230417
  Serious: Yes (Other)
  Sender: FDA-Public Use
  Company Number: AT-002147023-NVSC2022AT250616

PATIENT
  Age: 18 Year
  Sex: Female

DRUGS (2)
  1. EVEROLIMUS [Suspect]
     Active Substance: EVEROLIMUS
     Indication: Brain stem glioma
     Dosage: UNK
     Route: 065
  2. CALPRES [Concomitant]
     Indication: Brain stem glioma
     Dosage: UNK
     Route: 065

REACTIONS (3)
  - Brain stem glioma [Unknown]
  - Malignant neoplasm progression [Unknown]
  - PIK3CA-activated mutation [Unknown]
